FAERS Safety Report 8050710-2 (Version None)
Quarter: 2012Q1

REPORT INFORMATION
  Report Type: 
  Country: None (occurrence: None)
  Receive Date: 20120117
  Receipt Date: 20120117
  Transmission Date: 20120608
  Serious: Yes (Other)
  Sender: FDA-Public Use
  Company Number: None

PATIENT
  Sex: Female
  Weight: 49.895 kg

DRUGS (1)
  1. ACCUTANE [Suspect]
     Indication: ACNE CYSTIC
     Route: 048

REACTIONS (8)
  - ANAL FISSURE [None]
  - MUCOSAL ATROPHY [None]
  - OESOPHAGEAL ULCER [None]
  - ARTHRALGIA [None]
  - DRY SKIN [None]
  - SKIN ATROPHY [None]
  - FATIGUE [None]
  - SKIN WRINKLING [None]
